FAERS Safety Report 19240023 (Version 1)
Quarter: 2021Q2

REPORT INFORMATION
  Report Type: Report from Study
  Country: US (occurrence: US)
  Receive Date: 20210511
  Receipt Date: 20210511
  Transmission Date: 20210717
  Serious: Yes (Hospitalization)
  Sender: FDA-Public Use
  Company Number: US-TAKEDA-2021TUS028418

PATIENT
  Sex: Male
  Weight: 80.27 kg

DRUGS (21)
  1. SPIRIVA [Concomitant]
     Active Substance: TIOTROPIUM BROMIDE MONOHYDRATE
  2. GLASSIA [Suspect]
     Active Substance: .ALPHA.1-PROTEINASE INHIBITOR HUMAN
     Indication: ALPHA-1 ANTITRYPSIN DEFICIENCY
     Dosage: 6000 MILLIGRAM, 1/WEEK
     Route: 042
     Dates: start: 20190803
  3. CALCIUM [Concomitant]
     Active Substance: CALCIUM
  4. DILTIAZEM. [Concomitant]
     Active Substance: DILTIAZEM
  5. PHENOBARBITAL. [Concomitant]
     Active Substance: PHENOBARBITAL
  6. ASPIRIN (E.C.) [Concomitant]
     Active Substance: ASPIRIN
  7. FINASTERIDE. [Concomitant]
     Active Substance: FINASTERIDE
  8. ATORVASTATIN [Concomitant]
     Active Substance: ATORVASTATIN
  9. FENOFIBRATE. [Concomitant]
     Active Substance: FENOFIBRATE
  10. VITAMIN D3 [Concomitant]
     Active Substance: CHOLECALCIFEROL
  11. GLASSIA [Suspect]
     Active Substance: .ALPHA.1-PROTEINASE INHIBITOR HUMAN
     Indication: ALPHA-1 ANTITRYPSIN DEFICIENCY
     Dosage: 6000 MILLIGRAM, 1/WEEK
     Route: 042
     Dates: start: 20190803
  12. BREO ELLIPTA [Concomitant]
     Active Substance: FLUTICASONE FUROATE\VILANTEROL TRIFENATATE
  13. ALLOPURINOL. [Concomitant]
     Active Substance: ALLOPURINOL
  14. VITAMIN B [Concomitant]
     Active Substance: VITAMIN B
  15. LISINOPRIL. [Concomitant]
     Active Substance: LISINOPRIL
  16. ELIQUIS [Concomitant]
     Active Substance: APIXABAN
  17. PREDNISONE. [Concomitant]
     Active Substance: PREDNISONE
  18. MAGNESIUM [Concomitant]
     Active Substance: MAGNESIUM
  19. HYDROCHLOROTHIAZIDE. [Concomitant]
     Active Substance: HYDROCHLOROTHIAZIDE
  20. FISH OIL + RED KRILL OIL [Concomitant]
  21. ARICEPT [Concomitant]
     Active Substance: DONEPEZIL HYDROCHLORIDE

REACTIONS (3)
  - Fall [Unknown]
  - Tibia fracture [Unknown]
  - Fibula fracture [Unknown]
